FAERS Safety Report 8865607 (Version 1)
Quarter: 2012Q4

REPORT INFORMATION
  Report Type: 
  Country: US (occurrence: US)
  Receive Date: 20121024
  Receipt Date: 20121024
  Transmission Date: 20130627
  Serious: No
  Sender: FDA-Public Use
  Company Number: US-AMGEN-USASP2012004023

PATIENT
  Age: 48 Year
  Sex: Male

DRUGS (7)
  1. ENBREL [Suspect]
     Indication: PRODUCT USED FOR UNKNOWN INDICATION
     Dosage: 25 mg, 2 times/wk
     Route: 058
  2. ESTER C                            /00008001/ [Concomitant]
     Dosage: UNK
  3. MULTIVITAMIN                       /00097801/ [Concomitant]
  4. MOTRIN [Concomitant]
     Dosage: 800 mg, UNK
  5. LOPRESSOR [Concomitant]
     Dosage: 50 mg, UNK
  6. VITAMIN D /00107901/ [Concomitant]
     Dosage: UNK
  7. NORVASC [Concomitant]
     Dosage: 5 mg, UNK

REACTIONS (2)
  - Headache [Unknown]
  - Dizziness [Recovered/Resolved]
